FAERS Safety Report 6874715-X (Version None)
Quarter: 2010Q3

REPORT INFORMATION
  Report Type: 
  Country: None (occurrence: None)
  Receive Date: 20100722
  Receipt Date: 20100714
  Transmission Date: 20110219
  Serious: Yes (Hospitalization)
  Sender: FDA-Public Use
  Company Number: ADR-272-075

PATIENT
  Age: 54 Year
  Sex: Female
  Weight: 45.3597 kg

DRUGS (9)
  1. RAMIPRIL [Suspect]
     Indication: BLOOD PRESSURE ABNORMAL
     Dosage: 2.5 MG 1CAPSUL/DAY, ORAL; PAST SIX MONTHS
     Route: 048
  2. RAMIPRIL [Suspect]
     Indication: CARDIOVASCULAR EVENT PROPHYLAXIS
     Dosage: 2.5 MG 1CAPSUL/DAY, ORAL; PAST SIX MONTHS
     Route: 048
  3. ATENELOL [Concomitant]
  4. POTASSIUM TABLETS [Concomitant]
  5. HCTZ-25MG [Concomitant]
  6. TOPIRAMATE [Concomitant]
  7. ADDEROL [Concomitant]
  8. WEOLBUTRIN [Concomitant]
  9. CHLONAZAPAM [Concomitant]

REACTIONS (1)
  - ANGIOEDEMA [None]
